FAERS Safety Report 10475407 (Version 1)
Quarter: 2014Q3

REPORT INFORMATION
  Report Type: Spontaneous
  Country: US (occurrence: US)
  Receive Date: 20140925
  Receipt Date: 20140925
  Transmission Date: 20150326
  Serious: No
  Sender: FDA-Public Use
  Company Number: US-BAYER-2014-141970

PATIENT
  Age: 84 Year
  Sex: Female

DRUGS (2)
  1. LISINOPRIL. [Concomitant]
     Active Substance: LISINOPRIL
     Dosage: UNK
  2. ALEVE [Suspect]
     Active Substance: NAPROXEN SODIUM
     Indication: GLAUCOMA
     Dosage: 1-2 DF, PRN
     Route: 048

REACTIONS (2)
  - Therapeutic response changed [Unknown]
  - Intentional product misuse [Unknown]
